FAERS Safety Report 19248286 (Version 3)
Quarter: 2022Q2

REPORT INFORMATION
  Report Type: Spontaneous
  Country: US (occurrence: US)
  Receive Date: 20210512
  Receipt Date: 20220426
  Transmission Date: 20220721
  Serious: No
  Sender: FDA-Public Use
  Company Number: US-PFIZER INC-2021508853

PATIENT
  Age: 84 Year
  Sex: Male
  Weight: 90.72 kg

DRUGS (1)
  1. VYNDAMAX [Suspect]
     Active Substance: TAFAMIDIS
     Indication: Amyloidosis
     Dosage: 61 MG, (ONE CAPSULE BY MOUTH ONCE A DAY)
     Route: 048
     Dates: start: 2021

REACTIONS (2)
  - Eructation [Unknown]
  - Dysphonia [Not Recovered/Not Resolved]

NARRATIVE: CASE EVENT DATE: 20210301
